FAERS Safety Report 4286147-1 (Version None)
Quarter: 2004Q1

REPORT INFORMATION
  Report Type: 
  Country: None (occurrence: None)
  Receive Date: 20040205
  Receipt Date: 20040126
  Transmission Date: 20041129
  Serious: Yes (Death, Hospitalization)
  Sender: FDA-Public Use
  Company Number: FR-BRISTOL-MYERS SQUIBB COMPANY-12487773

PATIENT
  Age: 79 Year
  Sex: Male

DRUGS (10)
  1. MUCOMYST [Suspect]
     Route: 048
     Dates: start: 20031218, end: 20031219
  2. ASPIRIN [Suspect]
     Route: 048
     Dates: start: 20030901, end: 20031220
  3. VIRLIX [Suspect]
     Route: 048
     Dates: start: 20031218, end: 20031219
  4. PARACETAMOL BIOGARAN [Suspect]
     Route: 048
     Dates: start: 20031218, end: 20031219
  5. SINTROM [Suspect]
     Route: 048
     Dates: start: 20020801, end: 20031220
  6. DEROXAT [Suspect]
     Route: 048
     Dates: start: 20020701, end: 20031221
  7. VENTOLIN [Concomitant]
  8. AMYCOR [Concomitant]
  9. LOXEN [Concomitant]
  10. CARDENSIEL [Concomitant]

REACTIONS (5)
  - HERPES SIMPLEX [None]
  - LEUKOPENIA [None]
  - LYMPHOCYTE COUNT ABNORMAL [None]
  - RENAL FAILURE [None]
  - TOXIC EPIDERMAL NECROLYSIS [None]
